FAERS Safety Report 9869905 (Version 4)
Quarter: 2014Q1

REPORT INFORMATION
  Report Type: Spontaneous
  Country: IT (occurrence: None)
  Receive Date: 20140131
  Receipt Date: 20140331
  Transmission Date: 20141002
  Serious: Yes (Hospitalization)
  Sender: FDA-Public Use
  Company Number: AUR-APL-2014-00851

PATIENT
  Age: 91 Year
  Sex: Male

DRUGS (4)
  1. BISOPROLOL [Suspect]
     Indication: HYPERTENSION
     Dosage: (1.25 MG, 1 D)
     Route: 048
     Dates: start: 20130101, end: 20131205
  2. ENLAPRIL [Suspect]
     Indication: HYPERTENSION
     Dosage: (5 MG, 1 D)
     Route: 048
     Dates: start: 20130101, end: 20131201
  3. ACEYTLSALICYLIC ACID (ACETYLSALICYLIC ACID) [Concomitant]
  4. BROMAZEPAM (BROMAZEPAM) [Concomitant]

REACTIONS (4)
  - Dehydration [None]
  - Hyperkalaemia [None]
  - Renal failure acute [None]
  - Syncope [None]
